FAERS Safety Report 13208590 (Version 3)
Quarter: 2018Q1

REPORT INFORMATION
  Report Type: Report from Study
  Country: US (occurrence: US)
  Receive Date: 20170209
  Receipt Date: 20180131
  Transmission Date: 20180508
  Serious: Yes (Hospitalization, Other)
  Sender: FDA-Public Use
  Company Number: US-MYLANLABS-2017M1007909

PATIENT
  Sex: Male
  Weight: 95 kg

DRUGS (18)
  1. TRETINOIN. [Concomitant]
     Active Substance: TRETINOIN
     Indication: ACNE
     Dosage: 0.1 %, QD
  2. BIOTENE                            /03475601/ [Concomitant]
     Indication: DRY MOUTH
     Dosage: UNK
     Route: 048
  3. DIPHENHYDRAMINE. [Concomitant]
     Active Substance: DIPHENHYDRAMINE
     Indication: AGITATION
     Dosage: 50 MG, PRN
  4. MELATONIN [Concomitant]
     Active Substance: MELATONIN
     Indication: INSOMNIA
     Dosage: 3 MG, HS
     Route: 048
  5. TERBINAFINE. [Concomitant]
     Active Substance: TERBINAFINE
     Indication: PRODUCT USED FOR UNKNOWN INDICATION
     Dosage: 250 MG, QD
     Route: 048
  6. CLOZAPINE. [Suspect]
     Active Substance: CLOZAPINE
     Dosage: 150 MG, HS
     Route: 048
     Dates: start: 20170207
  7. NYSTATIN. [Concomitant]
     Active Substance: NYSTATIN
     Indication: PRODUCT USED FOR UNKNOWN INDICATION
     Dosage: UNK
  8. CHOLECALCIFEROL [Concomitant]
     Active Substance: CHOLECALCIFEROL
     Indication: PRODUCT USED FOR UNKNOWN INDICATION
     Dosage: 1000 IU, QD
     Route: 048
  9. LITHIUM. [Concomitant]
     Active Substance: LITHIUM
     Dosage: 600 MG, HS
     Route: 048
  10. ASPIRIN                            /00002701/ [Concomitant]
     Active Substance: ASPIRIN
     Indication: PRODUCT USED FOR UNKNOWN INDICATION
     Dosage: 81 MG, QD
     Route: 048
  11. ACETAMINOPHEN. [Concomitant]
     Active Substance: ACETAMINOPHEN
     Indication: PAIN
     Dosage: 650 MG, PRN
  12. HALOPERIDOL. [Concomitant]
     Active Substance: HALOPERIDOL
     Indication: AGITATION
     Dosage: 5 MG, PRN
     Route: 048
  13. CLOZAPINE. [Suspect]
     Active Substance: CLOZAPINE
     Indication: SCHIZOAFFECTIVE DISORDER
     Dosage: 25 MG, HS
     Route: 048
     Dates: start: 20170131
  14. CLOZAPINE. [Suspect]
     Active Substance: CLOZAPINE
     Dosage: 350 MG, HS
     Route: 048
     Dates: start: 2017, end: 20170303
  15. DIPHENHYDRAMINE. [Concomitant]
     Active Substance: DIPHENHYDRAMINE
     Indication: AGITATION
     Dosage: 50 MG, PRN
     Route: 030
  16. HALOPERIDOL. [Concomitant]
     Active Substance: HALOPERIDOL
     Indication: AGITATION
     Dosage: 5 MG, PRN
     Route: 030
  17. LITHIUM. [Concomitant]
     Active Substance: LITHIUM
     Indication: PRODUCT USED FOR UNKNOWN INDICATION
     Dosage: 300 MG, BID
     Route: 048
  18. LORAZEPAM. [Concomitant]
     Active Substance: LORAZEPAM
     Indication: AGITATION
     Dosage: 2 MG, PRN
     Route: 048

REACTIONS (1)
  - Schizophrenia [Unknown]
